FAERS Safety Report 25037509 (Version 1)
Quarter: 2025Q1

REPORT INFORMATION
  Report Type: Report from Study
  Country: US (occurrence: US)
  Receive Date: 20250304
  Receipt Date: 20250304
  Transmission Date: 20250408
  Serious: No
  Sender: SANDOZ
  Company Number: US-002147023-NVSC2023US109265

PATIENT
  Age: 10 Year
  Sex: Male
  Weight: 24 kg

DRUGS (4)
  1. OMNITROPE [Suspect]
     Active Substance: SOMATROPIN
     Indication: Short stature
     Dosage: 0.8 MG, QD
     Route: 058
     Dates: start: 20230427
  2. OMNITROPE [Suspect]
     Active Substance: SOMATROPIN
     Indication: Short stature
     Dosage: 0.8 MG, QD
     Route: 058
     Dates: start: 20230427
  3. OMNITROPE [Suspect]
     Active Substance: SOMATROPIN
     Dosage: 1 MG, QD
     Route: 058
  4. OMNITROPE [Suspect]
     Active Substance: SOMATROPIN
     Dosage: 1 MG, QD
     Route: 058

REACTIONS (3)
  - Mood altered [Recovered/Resolved]
  - Device leakage [Unknown]
  - Circumstance or information capable of leading to medication error [Unknown]

NARRATIVE: CASE EVENT DATE: 20230427
